FAERS Safety Report 4653427-7 (Version None)
Quarter: 2005Q2

REPORT INFORMATION
  Report Type: 
  Country: None (occurrence: None)
  Receive Date: 20050503
  Receipt Date: 20050420
  Transmission Date: 20051028
  Serious: Yes (Hospitalization)
  Sender: FDA-Public Use
  Company Number: US014853

PATIENT
  Age: 47 Year
  Sex: Female

DRUGS (5)
  1. PROVIGIL [Suspect]
     Indication: SLEEP APNOEA SYNDROME
     Dosage: 200 MG QD ORAL
     Route: 048
     Dates: start: 20050107, end: 20050201
  2. PERINDOPRIL [Concomitant]
  3. INDAPAMIDE [Concomitant]
  4. FELODIPINE [Concomitant]
  5. HORMONE REPLACEMENT THERAPY [Concomitant]

REACTIONS (4)
  - AUTOIMMUNE DISORDER [None]
  - NEUTROPENIA [None]
  - PYREXIA [None]
  - VIRAL INFECTION [None]
